FAERS Safety Report 8143879-2 (Version None)
Quarter: 2012Q1

REPORT INFORMATION
  Report Type: 
  Country: None (occurrence: None)
  Receive Date: 20120217
  Receipt Date: 20120209
  Transmission Date: 20120608
  Serious: Yes (Disabling, Other)
  Sender: FDA-Public Use
  Company Number: JP-UCBSA-048443

PATIENT
  Age: 20 Year
  Sex: Male
  Weight: 47.5 kg

DRUGS (9)
  1. BISOLVON [Concomitant]
     Indication: PROPHYLAXIS
     Dosage: DAILY DOSE:3DF
     Route: 048
     Dates: start: 20100101
  2. ZONISAMIDE [Concomitant]
     Dates: start: 20120111
  3. MUCOSOLVAN [Concomitant]
     Indication: PROPHYLAXIS
     Dosage: DAILY DOSE:3DF
     Route: 048
     Dates: start: 20100101
  4. URSO 250 [Concomitant]
     Indication: HEPATIC FUNCTION ABNORMAL
     Dosage: DAILY DOSE: 300MG
     Route: 048
     Dates: start: 20100101
  5. KEPPRA [Suspect]
     Indication: POST-TRAUMATIC EPILEPSY
     Route: 048
     Dates: start: 20111215, end: 20120104
  6. LAC-B [Concomitant]
     Indication: CONSTIPATION PROPHYLAXIS
     Dosage: DAILY DOSE:3G
     Route: 048
     Dates: start: 20100101
  7. ZONISAMIDE [Concomitant]
  8. EPIRENAT [Concomitant]
     Indication: POST-TRAUMATIC EPILEPSY
     Dosage: DAILY DOSE : 27ML
     Route: 048
     Dates: start: 20100101
  9. BACLOFEN [Concomitant]
     Indication: MUSCULOSKELETAL STIFFNESS
     Dosage: DAILY DOSE:30MG
     Route: 048
     Dates: start: 20100101

REACTIONS (2)
  - MUSCULOSKELETAL STIFFNESS [None]
  - PYREXIA [None]
